FAERS Safety Report 7833823-7 (Version None)
Quarter: 2011Q4

REPORT INFORMATION
  Report Type: 
  Country: None (occurrence: None)
  Receive Date: 20111024
  Receipt Date: 20111018
  Transmission Date: 20120403
  Serious: Yes (Death, Hospitalization)
  Sender: FDA-Public Use
  Company Number: US-GLAXOSMITHKLINE-A0945310A

PATIENT
  Age: 63 Year
  Sex: Male
  Weight: 66.2 kg

DRUGS (27)
  1. COREG [Suspect]
     Indication: CARDIAC FAILURE CONGESTIVE
     Dosage: 25MG TWICE PER DAY
     Route: 048
     Dates: end: 20110921
  2. NEURONTIN [Concomitant]
     Dosage: 100U TWICE PER DAY
     Route: 048
     Dates: end: 20110921
  3. HYDROMORPHONE HCL [Concomitant]
     Dosage: .25MG AS REQUIRED
     Route: 042
     Dates: end: 20110921
  4. KLOR-CON [Concomitant]
     Dosage: 20MEQ AS REQUIRED
     Route: 048
     Dates: end: 20110921
  5. JANUVIA [Concomitant]
     Dosage: 100MG PER DAY
     Route: 048
     Dates: end: 20110921
  6. PLAVIX [Concomitant]
     Dosage: 75MG PER DAY
     Route: 048
     Dates: end: 20110921
  7. INSULIN [Concomitant]
     Route: 058
     Dates: start: 20110913, end: 20110921
  8. DUONEB [Concomitant]
     Dates: end: 20110921
  9. DOCUSATE [Concomitant]
     Dosage: 100MG TWICE PER DAY
     Route: 048
     Dates: start: 20110918, end: 20110921
  10. FERROUS SULFATE TAB [Concomitant]
     Dosage: 325U PER DAY
     Route: 048
     Dates: end: 20110921
  11. LEVOTHYROXINE SODIUM [Concomitant]
     Dosage: 12.5MCG PER DAY
     Route: 042
     Dates: end: 20110921
  12. MAGNESIUM OXIDE [Concomitant]
     Dosage: 400MG THREE TIMES PER DAY
     Route: 048
     Dates: end: 20110921
  13. ZOSYN [Concomitant]
     Dosage: 2.25G THREE TIMES PER DAY
     Route: 042
     Dates: end: 20110921
  14. HEPARIN [Concomitant]
     Dosage: 5000UNIT TWICE PER DAY
     Route: 058
     Dates: start: 20110911, end: 20110921
  15. LACTULOSE [Concomitant]
     Dosage: 30ML TWICE PER DAY
     Route: 048
     Dates: end: 20110921
  16. TYGACIL [Concomitant]
     Dosage: 50MG PER DAY
     Route: 042
     Dates: end: 20110921
  17. ELAVIL [Concomitant]
     Dosage: 50U AT NIGHT
     Route: 048
     Dates: end: 20110921
  18. TYLENOL-500 [Concomitant]
     Route: 048
     Dates: end: 20110921
  19. REGLAN [Concomitant]
     Dosage: 10MG AS REQUIRED
     Route: 048
     Dates: end: 20110921
  20. FLAGYL [Concomitant]
     Dosage: 500MG THREE TIMES PER DAY
     Route: 042
     Dates: end: 20110921
  21. SENOKOT [Concomitant]
     Dosage: 8.6MG TWICE PER DAY
     Route: 048
     Dates: end: 20110921
  22. KAYEXALATE [Concomitant]
     Dosage: 15G AS REQUIRED
     Route: 048
     Dates: end: 20110921
  23. ASPIRIN [Concomitant]
     Dosage: 81MG PER DAY
     Route: 048
     Dates: end: 20110921
  24. BISACODYL [Concomitant]
     Dosage: 10MG PER DAY
     Route: 054
     Dates: end: 20110921
  25. PLETAL [Concomitant]
     Dosage: 100MG TWICE PER DAY
     Route: 048
     Dates: end: 20110921
  26. HYDROCORTISONE [Concomitant]
     Dosage: 50MG PER DAY
     Route: 042
     Dates: start: 20110918, end: 20110919
  27. OMEPRAZOLE [Concomitant]
     Dosage: 20MG PER DAY
     Dates: end: 20110921

REACTIONS (3)
  - PNEUMONIA [None]
  - BLOOD ALKALINE PHOSPHATASE INCREASED [None]
  - DEATH [None]
